FAERS Safety Report 19678996 (Version 5)
Quarter: 2022Q2

REPORT INFORMATION
  Report Type: Spontaneous
  Country: US (occurrence: US)
  Receive Date: 20210809
  Receipt Date: 20220523
  Transmission Date: 20220720
  Serious: No
  Sender: FDA-Public Use
  Company Number: US-PFIZER INC-202100967515

PATIENT
  Age: 70 Year
  Sex: Female

DRUGS (1)
  1. PREGABALIN [Suspect]
     Active Substance: PREGABALIN
     Indication: Neuralgia
     Dosage: UNK

REACTIONS (8)
  - Urticaria [Unknown]
  - Illness [Unknown]
  - Rash [Unknown]
  - Skin discolouration [Unknown]
  - Fall [Unknown]
  - Abdominal pain upper [Unknown]
  - Fatigue [Unknown]
  - Drug hypersensitivity [Unknown]
